FAERS Safety Report 10248916 (Version 1)
Quarter: 2014Q2

REPORT INFORMATION
  Report Type: Spontaneous
  Country: US (occurrence: US)
  Receive Date: 20140620
  Receipt Date: 20140620
  Transmission Date: 20141212
  Serious: Yes (Other)
  Sender: FDA-Public Use
  Company Number: US-JNJFOC-20140609832

PATIENT
  Sex: Male
  Weight: 127.01 kg

DRUGS (1)
  1. INVOKANA [Suspect]
     Indication: TYPE 2 DIABETES MELLITUS
     Route: 048
     Dates: start: 201402, end: 201403

REACTIONS (8)
  - Scar [Not Recovered/Not Resolved]
  - Rash [Recovering/Resolving]
  - Fungal infection [Recovered/Resolved]
  - Eczema [Unknown]
  - Adverse drug reaction [Recovered/Resolved]
  - Skin disorder [Not Recovered/Not Resolved]
  - Skin haemorrhage [Not Recovered/Not Resolved]
  - Dry skin [Not Recovered/Not Resolved]
